FAERS Safety Report 12779690 (Version 2)
Quarter: 2016Q4

REPORT INFORMATION
  Report Type: Spontaneous
  Country: US (occurrence: US)
  Receive Date: 20160926
  Receipt Date: 20161003
  Transmission Date: 20170207
  Serious: No
  Sender: FDA-Public Use
  Company Number: US-PFIZER INC-2016445394

PATIENT
  Age: 63 Year
  Sex: Female

DRUGS (3)
  1. XELJANZ XR [Suspect]
     Active Substance: TOFACITINIB CITRATE
     Dosage: 11 MG
  2. A Z-PAK [Concomitant]
     Dosage: UNK
  3. MEDROL [Concomitant]
     Active Substance: METHYLPREDNISOLONE
     Dosage: UNK

REACTIONS (7)
  - Muscular weakness [Unknown]
  - Sinus congestion [Unknown]
  - Weight increased [Unknown]
  - Influenza like illness [Unknown]
  - Feeling abnormal [Unknown]
  - Dyspnoea [Unknown]
  - Bronchitis [Unknown]
